FAERS Safety Report 6923762-8 (Version None)
Quarter: 2010Q3

REPORT INFORMATION
  Report Type: 
  Country: None (occurrence: None)
  Receive Date: 20100813
  Receipt Date: 20100806
  Transmission Date: 20110219
  Serious: Yes (Hospitalization)
  Sender: FDA-Public Use
  Company Number: JP-JNJFOC-20100803886

PATIENT
  Age: 27 Year
  Sex: Female

DRUGS (2)
  1. LEVOFLOXACIN [Suspect]
     Indication: INFECTION
     Route: 048
  2. LOXONIN [Suspect]
     Indication: ANALGESIC THERAPY
     Route: 048

REACTIONS (3)
  - GINGIVAL OEDEMA [None]
  - HEPATITIS FULMINANT [None]
  - LIVER DISORDER [None]
